FAERS Safety Report 12639821 (Version 1)
Quarter: 2016Q3

REPORT INFORMATION
  Report Type: Spontaneous
  Country: US (occurrence: None)
  Receive Date: 20160809
  Receipt Date: 20160809
  Transmission Date: 20161109
  Serious: Yes (Life-Threatening, Hospitalization)
  Sender: FDA-Public Use
  Company Number: None

PATIENT
  Age: 30 Year
  Sex: Male
  Weight: 90.72 kg

DRUGS (6)
  1. XALATAN [Concomitant]
     Active Substance: LATANOPROST
  2. CHOLESTEROL AIDE [Concomitant]
  3. CLOZARIL [Suspect]
     Active Substance: CLOZAPINE
     Indication: HALLUCINATION
     Dosage: BY MOUTH AFTERWARDS BUT FIRST A FREON INJECTION/STIFF
     Route: 048
     Dates: start: 1998, end: 2004
  4. ABILIFY [Concomitant]
     Active Substance: ARIPIPRAZOLE
  5. VALERIAN [Concomitant]
     Active Substance: VALERIAN
  6. PROLIXIN [Concomitant]
     Active Substance: FLUPHENAZINE HYDROCHLORIDE

REACTIONS (1)
  - Pneumonia [None]

NARRATIVE: CASE EVENT DATE: 1998
